FAERS Safety Report 4655438-4 (Version None)
Quarter: 2005Q2

REPORT INFORMATION
  Report Type: 
  Country: None (occurrence: None)
  Receive Date: 20050505
  Receipt Date: 20050420
  Transmission Date: 20051028
  Serious: Yes (Hospitalization)
  Sender: FDA-Public Use
  Company Number: USA050496169

PATIENT
  Age: 79 Year
  Sex: Female

DRUGS (2)
  1. FORTEO [Suspect]
  2. COUMADIN [Concomitant]

REACTIONS (3)
  - BLOOD DISORDER [None]
  - DRUG TOXICITY [None]
  - PHARMACEUTICAL PRODUCT COMPLAINT [None]
